FAERS Safety Report 8334532-0 (Version None)
Quarter: 2012Q2

REPORT INFORMATION
  Report Type: 
  Country: None (occurrence: None)
  Receive Date: 20120503
  Receipt Date: 20120426
  Transmission Date: 20120825
  Serious: Yes (Hospitalization)
  Sender: FDA-Public Use
  Company Number: US-BRISTOL-MYERS SQUIBB COMPANY-15105240

PATIENT
  Age: 67 Year
  Weight: 79 kg

DRUGS (2)
  1. COUMADIN [Suspect]
     Indication: MITRAL VALVE REPLACEMENT
     Dosage: 1DF:5-6MGS STARTED 15-16YRS AGO RESTARTED WITH 10MGS 1DF:3-4MG
     Route: 048
  2. ASPIRIN [Concomitant]

REACTIONS (2)
  - MYOCARDIAL INFARCTION [None]
  - EPISTAXIS [None]
